FAERS Safety Report 18706158 (Version 1)
Quarter: 2021Q1

REPORT INFORMATION
  Report Type: Spontaneous
  Country: FR (occurrence: FR)
  Receive Date: 20210106
  Receipt Date: 20210106
  Transmission Date: 20210419
  Serious: Yes (Hospitalization)
  Sender: FDA-Public Use
  Company Number: NVSC2020FR344058

PATIENT
  Age: 12 Year
  Sex: Female
  Weight: 46 kg

DRUGS (2)
  1. VALSARTAN. [Suspect]
     Active Substance: VALSARTAN
     Indication: TOXICITY TO VARIOUS AGENTS
     Dosage: 16 DF, TOTAL
     Route: 048
     Dates: start: 20201214, end: 20201214
  2. DOLIPRANE [Suspect]
     Active Substance: ACETAMINOPHEN
     Indication: TOXICITY TO VARIOUS AGENTS
     Dosage: 8000 MG, QD
     Route: 048
     Dates: start: 20201214, end: 20201214

REACTIONS (2)
  - Vomiting [Recovered/Resolved]
  - Abdominal pain [Recovered/Resolved]

NARRATIVE: CASE EVENT DATE: 20201214
